FAERS Safety Report 8939159 (Version 1)
Quarter: 2012Q4

REPORT INFORMATION
  Report Type: 
  Country: US (occurrence: US)
  Receive Date: 20121203
  Receipt Date: 20121203
  Transmission Date: 20130627
  Serious: Yes (Death)
  Sender: FDA-Public Use
  Company Number: US-PFIZER INC-2012301649

PATIENT
  Age: 65 Year
  Sex: Male

DRUGS (1)
  1. HALCION [Suspect]
     Indication: SLEEP DISORDER
     Dosage: UNK

REACTIONS (1)
  - Completed suicide [Fatal]
